FAERS Safety Report 20843656 (Version 1)
Quarter: 2022Q2

REPORT INFORMATION
  Report Type: Spontaneous
  Country: FR (occurrence: FR)
  Receive Date: 20220518
  Receipt Date: 20220518
  Transmission Date: 20220721
  Serious: Yes (Other)
  Sender: FDA-Public Use
  Company Number: None

PATIENT
  Age: 44 Year
  Sex: Male

DRUGS (2)
  1. TRAMADOL [Interacting]
     Active Substance: TRAMADOL
     Indication: Back pain
     Dosage: 3 DOSAGE FORMS DAILY; 100 MG LP 1-1-1 , CHLORHYDRATE DE TRAMADOL
     Route: 048
     Dates: start: 20220324, end: 20220410
  2. ACETAMINOPHEN\OPIUM [Interacting]
     Active Substance: ACETAMINOPHEN\OPIUM
     Indication: Back pain
     Dosage: 6 DOSAGE FORMS DAILY; 2-2-2
     Route: 048
     Dates: start: 20220324, end: 20220410

REACTIONS (2)
  - Withdrawal syndrome [Recovering/Resolving]
  - Drug interaction [Unknown]

NARRATIVE: CASE EVENT DATE: 20220416
